FAERS Safety Report 23015047 (Version 6)
Quarter: 2024Q1

REPORT INFORMATION
  Report Type: Spontaneous
  Country: JP (occurrence: JP)
  Receive Date: 20231002
  Receipt Date: 20240329
  Transmission Date: 20240410
  Serious: Yes (Hospitalization, Other)
  Sender: FDA-Public Use
  Company Number: JP-OTSUKA-2023_025452

PATIENT
  Age: 51 Year
  Sex: Female

DRUGS (33)
  1. REXULTI [Suspect]
     Active Substance: BREXPIPRAZOLE
     Indication: Schizophrenia
     Dosage: 2 MG/DAY, QD, BEFORE GOING TO BED
     Route: 048
     Dates: start: 20230718, end: 20230918
  2. REXULTI [Suspect]
     Active Substance: BREXPIPRAZOLE
     Indication: Schizophrenia
     Dosage: 1 MG/DAY, QD, BEFORE GOING TO BED
     Route: 048
     Dates: start: 20230713, end: 20230717
  3. REXULTI [Suspect]
     Active Substance: BREXPIPRAZOLE
     Dosage: 1 MG/DAY, QD, BEFORE GOING TO BED
     Route: 048
     Dates: start: 20230919, end: 20230925
  4. LATUDA [Suspect]
     Active Substance: LURASIDONE HYDROCHLORIDE
     Indication: Schizophrenia
     Dosage: 40 MG, QD
     Route: 048
     Dates: start: 20230823, end: 20230823
  5. LATUDA [Suspect]
     Active Substance: LURASIDONE HYDROCHLORIDE
     Dosage: 60 MG, QD
     Route: 048
     Dates: start: 20230824, end: 20230828
  6. LATUDA [Suspect]
     Active Substance: LURASIDONE HYDROCHLORIDE
     Dosage: 80 MG, QD
     Route: 048
     Dates: start: 20230829, end: 20231023
  7. LATUDA [Suspect]
     Active Substance: LURASIDONE HYDROCHLORIDE
     Dosage: 30 MG, BID
     Route: 048
     Dates: start: 20231024, end: 20231030
  8. LATUDA [Suspect]
     Active Substance: LURASIDONE HYDROCHLORIDE
     Dosage: 20 MG, BID
     Route: 048
     Dates: start: 20231031, end: 20231113
  9. LATUDA [Suspect]
     Active Substance: LURASIDONE HYDROCHLORIDE
     Dosage: 20 MG, QD
     Route: 048
     Dates: start: 20231114, end: 20231120
  10. LORAZEPAM [Concomitant]
     Active Substance: LORAZEPAM
     Indication: Product used for unknown indication
     Dosage: 2 MG/DAY, QD, BEFORE GOING TO BED
     Route: 048
     Dates: start: 20230620, end: 20230801
  11. LORAZEPAM [Concomitant]
     Active Substance: LORAZEPAM
     Dosage: 1 MG, QD
     Route: 048
     Dates: start: 20230802, end: 20230804
  12. LITHIUM CARBONATE [Concomitant]
     Active Substance: LITHIUM CARBONATE
     Indication: Schizophrenia
     Dosage: 300 MG, BID, AFTER BREAKFAST AND DINNER
     Route: 048
     Dates: start: 20230307, end: 20230831
  13. OLANZAPINE [Concomitant]
     Active Substance: OLANZAPINE
     Indication: Schizophrenia
     Dosage: 5 MG, QD, AFTER DINNER
     Route: 048
     Dates: end: 20230828
  14. OLANZAPINE [Concomitant]
     Active Substance: OLANZAPINE
     Indication: Schizophrenia
     Dosage: 3.75 MG, QD, AFTER DINNER
     Route: 065
     Dates: start: 20230829, end: 20230911
  15. OLANZAPINE [Concomitant]
     Active Substance: OLANZAPINE
     Dosage: 2.5 MG, QD, AFTER DINNER
     Route: 065
     Dates: start: 20230912, end: 20230914
  16. OLANZAPINE [Concomitant]
     Active Substance: OLANZAPINE
     Dosage: 5 MG, QD, AFTER DINNER
     Route: 065
     Dates: start: 20230915, end: 20230920
  17. OLANZAPINE [Concomitant]
     Active Substance: OLANZAPINE
     Dosage: 7.5 MG, QD, AFTER DINNER
     Route: 065
     Dates: start: 20230921
  18. QUETIAPINE FUMARATE [Concomitant]
     Active Substance: QUETIAPINE FUMARATE
     Indication: Schizophrenia
     Dosage: 50 MG, QD, BEFORE GOING TO BED (AT TIMES OF SLEEPLESSNESS AND UNREST)
     Route: 048
     Dates: end: 20230626
  19. QUETIAPINE FUMARATE [Concomitant]
     Active Substance: QUETIAPINE FUMARATE
     Dosage: 25 MG, QD, BEFORE GOING TO BED (AT TIMES OF SLEEPLESSNESS AND UNREST)
     Route: 048
     Dates: start: 20230627, end: 20231002
  20. QUETIAPINE FUMARATE [Concomitant]
     Active Substance: QUETIAPINE FUMARATE
     Dosage: 50 MG, QD
     Route: 048
     Dates: start: 20230814, end: 20230817
  21. QUETIAPINE FUMARATE [Concomitant]
     Active Substance: QUETIAPINE FUMARATE
     Dosage: 75 MG, QD, BEFORE GOING TO BED (AT TIMES OF SLEEPLESSNESS AND UNREST)
     Route: 048
     Dates: start: 20231107
  22. QUETIAPINE FUMARATE [Concomitant]
     Active Substance: QUETIAPINE FUMARATE
     Indication: Schizophrenia
     Dosage: 200 MG, QD, BEFORE GOING TO BED
     Route: 048
     Dates: end: 20231106
  23. QUETIAPINE FUMARATE [Concomitant]
     Active Substance: QUETIAPINE FUMARATE
     Dosage: 100 MG, QD, BEFORE GOING TO BED
     Route: 048
     Dates: start: 20231107
  24. QUETIAPINE FUMARATE [Concomitant]
     Active Substance: QUETIAPINE FUMARATE
     Indication: Schizophrenia
     Dosage: 12.5 MG, QD, BEFORE GOING TO BED
     Route: 048
     Dates: start: 20231003, end: 20231009
  25. ARIPIPRAZOLE [Concomitant]
     Active Substance: ARIPIPRAZOLE
     Indication: Schizophrenia
     Dosage: 12 MG, BID, AFTER BREAKFAST AND DINNER
     Route: 048
     Dates: end: 20230717
  26. ARIPIPRAZOLE [Concomitant]
     Active Substance: ARIPIPRAZOLE
     Dosage: 12 MG, QD, AFTER DINNER
     Route: 048
     Dates: start: 20230718, end: 20230724
  27. ARIPIPRAZOLE [Concomitant]
     Active Substance: ARIPIPRAZOLE
     Indication: Schizophrenia
     Dosage: 6 MG, QD, AFTER BREAKFAST
     Route: 048
     Dates: start: 20230718, end: 20230724
  28. ARIPIPRAZOLE [Concomitant]
     Active Substance: ARIPIPRAZOLE
     Dosage: 6 MG, BID, AFTER BREAKFAST AND DINNER
     Route: 048
     Dates: start: 20230725, end: 20230804
  29. DAYVIGO [Concomitant]
     Active Substance: LEMBOREXANT
     Indication: Product used for unknown indication
     Dosage: 5 MG, QD, BEFORE GOING TO BED
     Route: 065
     Dates: end: 20230803
  30. DAYVIGO [Concomitant]
     Active Substance: LEMBOREXANT
     Dosage: 10 MG, QD, BEFORE GOING TO BED
     Route: 065
     Dates: start: 20230804
  31. NITRAZEPAM [Concomitant]
     Active Substance: NITRAZEPAM
     Indication: Product used for unknown indication
     Dosage: 10 MG, QD, BEFORE GOING TO BED
     Route: 048
  32. INTUNIV [Concomitant]
     Active Substance: GUANFACINE HYDROCHLORIDE
     Indication: Product used for unknown indication
     Dosage: 2 MG, QD, AFTER BREAKFAST
     Route: 065
     Dates: end: 20230913
  33. INTUNIV [Concomitant]
     Active Substance: GUANFACINE HYDROCHLORIDE
     Indication: Product used for unknown indication
     Dosage: 3 MG, QD, AFTER BREAKFAST
     Route: 065
     Dates: end: 20230829

REACTIONS (5)
  - Ataxia [Recovered/Resolved]
  - Communication disorder [Unknown]
  - Psychiatric symptom [Unknown]
  - Fall [Unknown]
  - Insomnia [Unknown]

NARRATIVE: CASE EVENT DATE: 20230731
